FAERS Safety Report 14376937 (Version 2)
Quarter: 2018Q1

REPORT INFORMATION
  Report Type: Spontaneous
  Country: US (occurrence: US)
  Receive Date: 20180111
  Receipt Date: 20180111
  Transmission Date: 20180509
  Serious: No
  Sender: FDA-Public Use
  Company Number: US-DRREDDYS-USA/USA/17/0087373

PATIENT
  Sex: Female
  Weight: 90.7 kg

DRUGS (1)
  1. HABITROL [Suspect]
     Active Substance: NICOTINE
     Indication: SMOKING CESSATION THERAPY
     Route: 061

REACTIONS (7)
  - Application site vesicles [Recovered/Resolved]
  - Product packaging quantity issue [Unknown]
  - Application site scab [Not Recovered/Not Resolved]
  - Wound secretion [Unknown]
  - Pruritus [Recovered/Resolved]
  - Application site rash [Recovered/Resolved]
  - Skin exfoliation [Unknown]
